APPROVED DRUG PRODUCT: EVEX
Active Ingredient: ESTROGENS, ESTERIFIED
Strength: 0.625MG
Dosage Form/Route: TABLET;ORAL
Application: A084215 | Product #001
Applicant: ROCHE PALO ALTO LLC
Approved: Approved Prior to Jan 1, 1982 | RLD: No | RS: No | Type: DISCN